FAERS Safety Report 6600073-1 (Version None)
Quarter: 2010Q1

REPORT INFORMATION
  Report Type: 
  Country: None (occurrence: None)
  Receive Date: 20100224
  Receipt Date: 20100215
  Transmission Date: 20100710
  Serious: Yes (Other)
  Sender: FDA-Public Use
  Company Number: PHHY2010FR08758

PATIENT
  Age: 58 Year
  Sex: Male

DRUGS (1)
  1. AFINITOR [Suspect]
     Indication: RENAL CELL CARCINOMA
     Dosage: 10 MG/DAY
     Route: 048

REACTIONS (4)
  - CONDITION AGGRAVATED [None]
  - FOLLICULITIS [None]
  - PRURITUS [None]
  - RASH ERYTHEMATOUS [None]
